FAERS Safety Report 8791272 (Version 4)
Quarter: 2013Q1

REPORT INFORMATION
  Report Type: Spontaneous
  Country: GB (occurrence: None)
  Receive Date: 20120911
  Receipt Date: 20120924
  Transmission Date: 20140127
  Serious: Yes (Other)
  Sender: FDA-Public Use
  Company Number: GER/UKI/12/0025687

PATIENT
  Age: 15 Year
  Sex: Female

DRUGS (4)
  1. CETIRIZINE (CETIRIZINE) [Suspect]
     Indication: SEASONAL ALLERGY
     Route: 048
  2. LAMICTAL (LAMOTRIGINE) TABLET [Suspect]
     Indication: BIPOLAR DISORDER
     Route: 048
  3. ARIPIPRAZOLE (ARIPIPRAZOLE) [Suspect]
     Indication: BIPOLAR DISORDER
  4. NEXPLANON [Suspect]
     Indication: CONTRACEPTION

REACTIONS (4)
  - Pregnancy with implant contraceptive [None]
  - Maternal exposure during pregnancy [None]
  - Abortion spontaneous [None]
  - Drug interaction [None]
